FAERS Safety Report 6829357-9 (Version None)
Quarter: 2010Q3

REPORT INFORMATION
  Report Type: 
  Country: None (occurrence: None)
  Receive Date: 20100709
  Receipt Date: 20070304
  Transmission Date: 20110219
  Serious: No
  Sender: FDA-Public Use
  Company Number: US-PFIZER INC-2007017266

PATIENT
  Sex: Male
  Weight: 81.65 kg

DRUGS (10)
  1. CHANTIX [Suspect]
     Dates: start: 20070207
  2. PLAVIX [Concomitant]
     Indication: CARDIAC DISORDER
     Dates: start: 20070101
  3. COREG [Concomitant]
     Indication: CARDIAC DISORDER
     Dates: start: 20070101
  4. ALTACE [Concomitant]
     Indication: CARDIAC DISORDER
     Dates: start: 20070101
  5. LIPITOR [Concomitant]
     Indication: BLOOD CHOLESTEROL INCREASED
     Dates: start: 20070101
  6. ZETIA [Concomitant]
     Indication: BLOOD CHOLESTEROL INCREASED
     Dates: start: 20070101
  7. XANAX [Concomitant]
     Dates: start: 20070101
  8. ACETYLSALICYLIC ACID [Concomitant]
     Dates: start: 20070101
  9. PAXIL [Concomitant]
     Indication: DEPRESSION
     Dates: start: 20070101
  10. PAXIL [Concomitant]
     Indication: ANXIETY

REACTIONS (1)
  - ABDOMINAL PAIN [None]
